FAERS Safety Report 23896667 (Version 2)
Quarter: 2024Q2

REPORT INFORMATION
  Report Type: Spontaneous
  Country: US (occurrence: US)
  Receive Date: 20240524
  Receipt Date: 20240626
  Transmission Date: 20240717
  Serious: No
  Sender: FDA-Public Use
  Company Number: US-PFIZER INC-202400173435

PATIENT
  Age: 7 Year
  Sex: Female

DRUGS (1)
  1. GENOTROPIN [Suspect]
     Active Substance: SOMATROPIN
     Dosage: 1 MG 6 DAYS PER WEEK

REACTIONS (1)
  - Device use error [Unknown]
